FAERS Safety Report 21719189 (Version 3)
Quarter: 2022Q4

REPORT INFORMATION
  Report Type: Other
  Country: PT (occurrence: PT)
  Receive Date: 20221213
  Receipt Date: 20221229
  Transmission Date: 20230112
  Serious: No
  Sender: FDA-Public Use
  Company Number: PT-CELLTRION HEALTHCARE HUNGARY KFT-2022PT019962

PATIENT
  Age: 63 Year
  Sex: Female

DRUGS (1)
  1. RITUXIMAB [Suspect]
     Active Substance: RITUXIMAB
     Indication: Splenic marginal zone lymphoma
     Route: 065

REACTIONS (2)
  - Off label use [Unknown]
  - Drug effective for unapproved indication [Unknown]
